FAERS Safety Report 16900218 (Version 3)
Quarter: 2019Q4

REPORT INFORMATION
  Report Type: Spontaneous
  Country: AU (occurrence: AU)
  Receive Date: 20191009
  Receipt Date: 20191024
  Transmission Date: 20200122
  Serious: Yes (Hospitalization)
  Sender: FDA-Public Use
  Company Number: AU-REGENERON PHARMACEUTICALS, INC.-2019-57128

PATIENT

DRUGS (6)
  1. EYLEA [Suspect]
     Active Substance: AFLIBERCEPT
     Dosage: UNK UNK, ONCE, SECOND INJECTION
     Route: 031
     Dates: start: 20190315, end: 20190315
  2. EYLEA [Suspect]
     Active Substance: AFLIBERCEPT
     Dosage: UNK UNK, ONCE, FOUTH INJECTION
     Route: 031
     Dates: start: 20190509, end: 20190509
  3. EYLEA [Suspect]
     Active Substance: AFLIBERCEPT
     Dosage: UNK UNK, ONCE, SISTH INJECTION
     Route: 031
     Dates: start: 20190801, end: 20190801
  4. EYLEA [Suspect]
     Active Substance: AFLIBERCEPT
     Dosage: UNK UNK, ONCE, THIRD INJECTION
     Route: 031
     Dates: start: 20190411, end: 20190411
  5. EYLEA [Suspect]
     Active Substance: AFLIBERCEPT
     Dosage: UNK UNK, ONCE, FIFTH INJECTION
     Route: 031
     Dates: start: 20190627, end: 20190627
  6. EYLEA [Suspect]
     Active Substance: AFLIBERCEPT
     Indication: AGE-RELATED MACULAR DEGENERATION
     Dosage: UNK UNK, ONCE, FIRST INJECTION
     Route: 031
     Dates: start: 20190215, end: 20190215

REACTIONS (2)
  - Fall [Unknown]
  - Cerebral haemorrhage [Unknown]

NARRATIVE: CASE EVENT DATE: 20190909
